FAERS Safety Report 9218464 (Version 1)
Quarter: 2013Q2

REPORT INFORMATION
  Report Type: Spontaneous
  Country: US (occurrence: US)
  Receive Date: 20130409
  Receipt Date: 20130409
  Transmission Date: 20140414
  Serious: No
  Sender: FDA-Public Use
  Company Number: US-BIOGENIDEC-2013BI030601

PATIENT
  Age: 50 Year
  Sex: Female

DRUGS (1)
  1. TYSABRI [Suspect]
     Indication: MULTIPLE SCLEROSIS
     Route: 042
     Dates: start: 20090403

REACTIONS (13)
  - Faecal incontinence [Not Recovered/Not Resolved]
  - Macular degeneration [Not Recovered/Not Resolved]
  - Urinary incontinence [Not Recovered/Not Resolved]
  - Balance disorder [Unknown]
  - Hearing impaired [Unknown]
  - Cognitive disorder [Unknown]
  - Fall [Recovered/Resolved]
  - Head injury [Unknown]
  - Memory impairment [Unknown]
  - Muscle strain [Not Recovered/Not Resolved]
  - Gait disturbance [Unknown]
  - Gastroenteritis viral [Unknown]
  - Multiple sclerosis [Unknown]
